FAERS Safety Report 7276688-7 (Version None)
Quarter: 2011Q1

REPORT INFORMATION
  Report Type: 
  Country: None (occurrence: None)
  Receive Date: 20110204
  Receipt Date: 20110131
  Transmission Date: 20110831
  Serious: Yes (Disabling)
  Sender: FDA-Public Use
  Company Number: US-MERCK-1102USA00066

PATIENT
  Age: 65 Year
  Sex: Female

DRUGS (2)
  1. JANUMET [Suspect]
     Indication: TYPE 2 DIABETES MELLITUS
     Route: 048
     Dates: start: 20100101
  2. CRESTOR [Concomitant]
     Indication: HYPERCHOLESTEROLAEMIA
     Route: 065
     Dates: start: 20110101, end: 20110101

REACTIONS (2)
  - ARTHRALGIA [None]
  - MYALGIA [None]
